FAERS Safety Report 8462434-8 (Version None)
Quarter: 2012Q2

REPORT INFORMATION
  Report Type: 
  Country: None (occurrence: None)
  Receive Date: 20120625
  Receipt Date: 20120619
  Transmission Date: 20120825
  Serious: No
  Sender: FDA-Public Use
  Company Number: US-PFIZER INC-2012147920

PATIENT
  Sex: Female
  Weight: 58.957 kg

DRUGS (2)
  1. PRISTIQ [Suspect]
     Indication: ANXIETY
     Dosage: 50 MG, 1X/DAY
     Route: 048
     Dates: start: 20100101, end: 20120617
  2. PRISTIQ [Suspect]
     Indication: DEPRESSION

REACTIONS (3)
  - HEAD DISCOMFORT [None]
  - HEADACHE [None]
  - NAUSEA [None]
